FAERS Safety Report 25056461 (Version 1)
Quarter: 2025Q1

REPORT INFORMATION
  Report Type: Spontaneous
  Country: CN (occurrence: CN)
  Receive Date: 20250310
  Receipt Date: 20250310
  Transmission Date: 20250408
  Serious: Yes (Hospitalization)
  Sender: Kenvue
  Company Number: CN-KENVUE-20250301007

PATIENT

DRUGS (3)
  1. CHILDRENS MOTRIN [Suspect]
     Active Substance: IBUPROFEN
     Indication: Antipyresis
     Route: 048
     Dates: start: 20250212, end: 20250212
  2. IBUPROFEN\PSEUDOEPHEDRINE HYDROCHLORIDE [Suspect]
     Active Substance: IBUPROFEN\PSEUDOEPHEDRINE HYDROCHLORIDE
     Indication: Antipyresis
     Dosage: 1 DOSAGE FORM, THRICE A DAY
     Route: 048
     Dates: start: 20250212, end: 20250212
  3. GLYCYRRHIZA [Suspect]
     Active Substance: LICORICE
     Indication: Cough
     Dosage: 10 MILLILITER, THRICE A DAY
     Route: 048
     Dates: start: 20250212, end: 20250212

REACTIONS (2)
  - Off label use [Unknown]
  - Drug eruption [Recovering/Resolving]

NARRATIVE: CASE EVENT DATE: 20250212
